FAERS Safety Report 7319930-6 (Version None)
Quarter: 2011Q1

REPORT INFORMATION
  Report Type: 
  Country: None (occurrence: None)
  Receive Date: 20110228
  Receipt Date: 20101214
  Transmission Date: 20110831
  Serious: No
  Sender: FDA-Public Use
  Company Number: A0899719A

PATIENT
  Age: 48 Year
  Sex: Male

DRUGS (10)
  1. METFORMIN [Concomitant]
  2. ADVAIR DISKUS 100/50 [Concomitant]
  3. NASONEX [Concomitant]
  4. SPIRIVA [Concomitant]
  5. TYLENOL [Concomitant]
  6. BENADRYL [Concomitant]
  7. LAMICTAL [Suspect]
     Indication: BIPOLAR DISORDER
     Dosage: 100MG TWICE PER DAY
     Route: 048
     Dates: start: 20050101
  8. VALIUM [Concomitant]
  9. GEODON [Concomitant]
  10. MULTIVITAMIN [Concomitant]

REACTIONS (2)
  - CHEST DISCOMFORT [None]
  - VERTIGO [None]
